FAERS Safety Report 7279221-9 (Version None)
Quarter: 2011Q1

REPORT INFORMATION
  Report Type: 
  Country: None (occurrence: None)
  Receive Date: 20110207
  Receipt Date: 20110131
  Transmission Date: 20110831
  Serious: Yes (Hospitalization)
  Sender: FDA-Public Use
  Company Number: US-GILEAD-2010-0027254

PATIENT
  Sex: Male
  Weight: 90.8 kg

DRUGS (10)
  1. AMBRISENTAN [Suspect]
     Indication: IDIOPATHIC PULMONARY FIBROSIS
     Route: 048
     Dates: start: 20100119, end: 20100331
  2. LOVASTATIN [Concomitant]
     Indication: HYPERCHOLESTEROLAEMIA
  3. VICODIN [Concomitant]
  4. VITAMIN D [Concomitant]
  5. AMBRISENTAN [Suspect]
     Route: 048
     Dates: start: 20091222, end: 20100104
  6. LANTUS [Concomitant]
     Indication: DIABETES MELLITUS
  7. WARFARIN [Concomitant]
     Indication: CARDIAC PACEMAKER INSERTION
  8. ASPIRIN [Concomitant]
     Indication: PROPHYLAXIS
  9. METOPROLOL TARTRATE [Concomitant]
     Indication: HYPERTENSION
  10. TYLENOL-500 [Concomitant]

REACTIONS (1)
  - HAEMOPTYSIS [None]
